FAERS Safety Report 10056302 (Version 1)
Quarter: 2014Q2

REPORT INFORMATION
  Report Type: Spontaneous
  Country: US (occurrence: None)
  Receive Date: 20140401
  Receipt Date: 20140401
  Transmission Date: 20141212
  Serious: Yes (Other)
  Sender: FDA-Public Use
  Company Number: 001697175A

PATIENT
  Age: 40 Year
  Sex: Female

DRUGS (2)
  1. PROACTIV + SKIN SMOOTHING EXFOLIATOR [Suspect]
     Indication: ACNE
     Dosage: DERMAL
     Dates: start: 20140307
  2. PROACTIV + COMPLEXION PERFECTING HYDRATOR [Suspect]
     Indication: ACNE
     Dosage: DERMAL
     Dates: start: 20140307

REACTIONS (3)
  - Dysgeusia [None]
  - Headache [None]
  - Dizziness [None]
